FAERS Safety Report 4491636-0 (Version None)
Quarter: 2004Q4

REPORT INFORMATION
  Report Type: 
  Country: None (occurrence: None)
  Receive Date: 20041101
  Receipt Date: 20041014
  Transmission Date: 20050328
  Serious: No
  Sender: FDA-Public Use
  Company Number: 2004AP05336

PATIENT
  Age: 42 Year
  Sex: Female

DRUGS (4)
  1. CARBOCAIN [Suspect]
     Indication: EPIDURAL ANAESTHESIA
     Dosage: 7 ML ED
     Route: 008
  2. MEXILETINE HYDROCHLORIDE [Suspect]
     Indication: ANALGESIC EFFECT
     Dosage: 300 MG DAILY PO
     Route: 048
  3. LIDOCAINE [Concomitant]
  4. BUPIVACAINE HCL [Concomitant]

REACTIONS (2)
  - CONVULSION [None]
  - DRUG INTERACTION [None]
